FAERS Safety Report 21086103 (Version 6)
Quarter: 2022Q3

REPORT INFORMATION
  Report Type: Spontaneous
  Country: US (occurrence: US)
  Receive Date: 20220715
  Receipt Date: 20220905
  Transmission Date: 20221026
  Serious: No
  Sender: FDA-Public Use
  Company Number: US-LUPIN PHARMACEUTICALS INC.-2022-09383

PATIENT
  Sex: Male
  Weight: 73.028 kg

DRUGS (1)
  1. DIVALPROEX SODIUM [Suspect]
     Active Substance: DIVALPROEX SODIUM
     Indication: Mental disorder
     Dosage: 250 MG, BID
     Route: 048
     Dates: end: 20220621

REACTIONS (5)
  - Body height decreased [Not Recovered/Not Resolved]
  - Rib fracture [Not Recovered/Not Resolved]
  - Bone disorder [Not Recovered/Not Resolved]
  - Off label use [Unknown]
  - Physical product label issue [Unknown]
